FAERS Safety Report 22284244 (Version 2)
Quarter: 2024Q1

REPORT INFORMATION
  Report Type: Spontaneous
  Country: US (occurrence: US)
  Receive Date: 20230504
  Receipt Date: 20240209
  Transmission Date: 20240410
  Serious: Yes (Hospitalization, Other)
  Sender: FDA-Public Use
  Company Number: US-AMNEAL PHARMACEUTICALS-2023-AMRX-01491

PATIENT
  Age: 1 Year
  Sex: Female
  Weight: 11.519 kg

DRUGS (4)
  1. VIGABATRIN [Suspect]
     Active Substance: VIGABATRIN
     Indication: Infantile spasms
     Dosage: 8 MILLILITER, BID
     Route: 048
  2. VIGABATRIN [Suspect]
     Active Substance: VIGABATRIN
     Dosage: 7.5 MILLILITER, BID
     Route: 048
  3. VIGABATRIN [Suspect]
     Active Substance: VIGABATRIN
     Dosage: MIX 2 PACKETS IN 20 ML OF WATER AND GIVE/TAKE 16 ML (800 MG) VIA G-TUBE, TWICE A DAY
     Route: 048
  4. EPIDIOLEX [Concomitant]
     Active Substance: CANNABIDIOL
     Indication: Product used for unknown indication
     Dosage: UNK
     Route: 065

REACTIONS (8)
  - Adverse event [Unknown]
  - Enterovirus infection [Unknown]
  - Pneumonia bacterial [Unknown]
  - Urinary retention [Unknown]
  - Lacrimation increased [Unknown]
  - Secretion discharge [Unknown]
  - Nasal congestion [Unknown]
  - Fatigue [Unknown]

NARRATIVE: CASE EVENT DATE: 20231208
